FAERS Safety Report 8386737-0 (Version None)
Quarter: 2012Q2

REPORT INFORMATION
  Report Type: 
  Country: None (occurrence: None)
  Receive Date: 20120525
  Receipt Date: 20120521
  Transmission Date: 20120825
  Serious: Yes (Hospitalization)
  Sender: FDA-Public Use
  Company Number: US-BAYER-2012-037960

PATIENT
  Age: 23 Year
  Sex: Female

DRUGS (7)
  1. DARVOCET [Concomitant]
     Indication: PAIN
     Dosage: UNK
     Dates: start: 20080501
  2. IBUPROFEN [Concomitant]
     Dosage: 800 MG, UNK
     Route: 048
  3. PROPO-N/APAP [Concomitant]
     Dosage: UNK
     Route: 048
  4. AVELOX [Concomitant]
     Dosage: 400 MG, UNK
     Route: 048
  5. PREDNISONE TAB [Concomitant]
     Dosage: 20 MG, UNK
     Route: 048
  6. YASMIN [Suspect]
     Indication: CONTRACEPTION
     Dosage: UNK
     Dates: start: 20080101, end: 20080501
  7. SULFAMETHOXAZOLE AND TRIMETHOPRIM DOUBLE STRENGTH [Concomitant]
     Dosage: UNK
     Route: 048

REACTIONS (8)
  - INJURY [None]
  - NERVOUSNESS [None]
  - PULMONARY EMBOLISM [None]
  - DEEP VEIN THROMBOSIS [None]
  - PAIN [None]
  - EMOTIONAL DISTRESS [None]
  - DEPRESSION [None]
  - FEAR OF DEATH [None]
